FAERS Safety Report 7551512-3 (Version None)
Quarter: 2011Q2

REPORT INFORMATION
  Report Type: 
  Country: None (occurrence: None)
  Receive Date: 20110616
  Receipt Date: 20110602
  Transmission Date: 20111010
  Serious: Yes (Hospitalization)
  Sender: FDA-Public Use
  Company Number: FR-PFIZER INC-FR-WYE-G06846110

PATIENT
  Age: 54 Year
  Sex: Male

DRUGS (13)
  1. MAGNESIUM [Suspect]
     Dosage: 5MG, THEN 1500 MG AND THEN 170 MG
     Route: 042
     Dates: start: 20100913, end: 20100913
  2. EZETIMIBE/SIMVASTATIN [Concomitant]
     Route: 065
  3. APREPITANT [Suspect]
     Dosage: 5 MG, 115 MG AND THEN 170 MG
     Route: 042
     Dates: start: 20100913, end: 20100913
  4. ASPIRIN [Concomitant]
     Route: 065
  5. VALSARTAN [Concomitant]
     Route: 065
  6. LEUCOVORIN CALCIUM [Suspect]
     Indication: RECTAL CANCER
     Dosage: 170 MG, UNK
     Route: 042
     Dates: start: 20100913, end: 20100913
  7. SOLU-MEDROL [Suspect]
     Indication: RECTAL CANCER
     Dosage: 60 MG, THEN 170 MG
     Route: 042
     Dates: start: 20100913, end: 20100913
  8. OXALIPLATIN [Suspect]
     Indication: RECTAL CANCER
     Dosage: 170 MG, UNK
     Route: 042
     Dates: start: 20100913, end: 20100913
  9. GLUCOPHAGE [Concomitant]
     Route: 048
  10. DEXCHLORPHENIRAMINE MALEATE [Suspect]
     Indication: URTICARIA
     Dosage: 10 MG, THEN 170 MG
     Route: 042
     Dates: start: 20100913, end: 20100913
  11. ERBITUX [Suspect]
     Indication: RECTAL CANCER
     Dosage: 5 MG, THEN 1 G CONTINUOUSLY, AND THEN 170 MG
     Route: 042
     Dates: start: 20100913, end: 20100913
  12. CALCIUM GLUCONATE [Suspect]
     Dosage: 5 MG, THEN 1 G, AND THEN 170 MG
     Route: 042
     Dates: start: 20100913, end: 20100913
  13. BISOPROLOL [Concomitant]
     Route: 065

REACTIONS (5)
  - HYPERHIDROSIS [None]
  - CHEST PAIN [None]
  - OXYGEN SATURATION DECREASED [None]
  - FALL [None]
  - HYPOTENSION [None]
